FAERS Safety Report 14782922 (Version 1)
Quarter: 2018Q2

REPORT INFORMATION
  Report Type: Spontaneous
  Country: JP (occurrence: JP)
  Receive Date: 20180420
  Receipt Date: 20180420
  Transmission Date: 20180711
  Serious: Yes (Hospitalization)
  Sender: FDA-Public Use
  Company Number: JP-ROCHE-2109693

PATIENT
  Age: 80 Year
  Sex: Male
  Weight: 63 kg

DRUGS (10)
  1. BISOPROLOL FUMARATE. [Concomitant]
     Active Substance: BISOPROLOL FUMARATE
     Route: 048
     Dates: start: 20180303
  2. AMLODIPINE OD EMEC [Concomitant]
     Route: 048
     Dates: start: 20180303
  3. CANDESARTAN. [Concomitant]
     Active Substance: CANDESARTAN
     Route: 048
     Dates: start: 20180303
  4. SEISHOKU [Concomitant]
     Active Substance: SODIUM CHLORIDE
     Dosage: DOSAGE IS UNCERTAIN.
     Route: 065
     Dates: start: 20180302, end: 20180302
  5. FEBURIC [Concomitant]
     Active Substance: FEBUXOSTAT
     Route: 048
     Dates: start: 20180303
  6. VEEN-D [Concomitant]
     Active Substance: DEXTROSE
     Dosage: DOSAGE IS UNCERTAIN.
     Route: 065
     Dates: start: 20180302, end: 20180302
  7. ELIQUIS [Concomitant]
     Active Substance: APIXABAN
     Route: 048
     Dates: start: 20180302, end: 20180305
  8. ELIQUIS [Concomitant]
     Active Substance: APIXABAN
     Dosage: DOSAGE IS UNCERTAIN.
     Route: 048
     Dates: start: 20180314
  9. DIGILANOGEN C [Concomitant]
     Dosage: DOSAGE IS UNCERTAIN.
     Route: 065
  10. TAMIFLU [Suspect]
     Active Substance: OSELTAMIVIR PHOSPHATE
     Indication: INFLUENZA
     Route: 048
     Dates: start: 20180302, end: 20180305

REACTIONS (1)
  - Platelet count decreased [Recovered/Resolved]

NARRATIVE: CASE EVENT DATE: 20180302
